FAERS Safety Report 5053414-3 (Version None)
Quarter: 2006Q2

REPORT INFORMATION
  Report Type: 
  Country: None (occurrence: None)
  Receive Date: 20060614
  Receipt Date: 20060403
  Transmission Date: 20061013
  Serious: Yes (Other)
  Sender: FDA-Public Use
  Company Number: 437008

PATIENT
  Age: 74 Year
  Sex: Female

DRUGS (7)
  1. BONIVA [Suspect]
     Indication: DRUG USE FOR UNKNOWN INDICATION
     Dosage: ORAL
     Route: 048
     Dates: start: 20060201, end: 20060415
  2. METROPOLOL COMP (HYDROCHLOROTHIAZIDE/METOPROLOL) [Concomitant]
  3. LOTREL (AMLODIPINE BESYLATE/BENAZEPRIL HYDROCHLORIDE) [Concomitant]
  4. ASPIRIN [Concomitant]
  5. ZOCOR [Concomitant]
  6. CALCIUM (CALCIUM) [Concomitant]
  7. FISH OIL (FISH OIL) [Concomitant]

REACTIONS (6)
  - COUGH [None]
  - DYSPEPSIA [None]
  - HYPERTENSION [None]
  - JOINT SWELLING [None]
  - MUSCULOSKELETAL STIFFNESS [None]
  - PAIN IN EXTREMITY [None]
